FAERS Safety Report 24570246 (Version 3)
Quarter: 2025Q3

REPORT INFORMATION
  Report Type: Report from Study
  Country: GB (occurrence: GB)
  Receive Date: 20241031
  Receipt Date: 20250803
  Transmission Date: 20251020
  Serious: Yes (Death, Other)
  Sender: ALEXION PHARMACEUTICALS
  Company Number: GB-ASTRAZENECA-202410GLO011045GB

PATIENT
  Age: 97 Year
  Sex: Female
  Weight: 62.2 kg

DRUGS (2)
  1. ANDEXANET ALFA [Suspect]
     Active Substance: ANDEXANET ALFA
     Indication: Haemorrhage
     Dates: start: 20240911, end: 20240911
  2. Pivmecilinam [Concomitant]
     Indication: Urinary tract infection

REACTIONS (1)
  - Cerebral haemorrhage [Fatal]

NARRATIVE: CASE EVENT DATE: 20240928
